FAERS Safety Report 6170585-6 (Version None)
Quarter: 2009Q2

REPORT INFORMATION
  Report Type: 
  Country: None (occurrence: None)
  Receive Date: 20090428
  Receipt Date: 20090420
  Transmission Date: 20091009
  Serious: Yes (Hospitalization)
  Sender: FDA-Public Use
  Company Number: US-ELI_LILLY_AND_COMPANY-US200904004543

PATIENT
  Sex: Female

DRUGS (3)
  1. FORTEO [Suspect]
     Indication: OSTEOPOROSIS
     Dates: start: 20090311, end: 20090417
  2. FORTEO [Suspect]
     Dates: start: 20090420
  3. CALCIUM W/VITAMIN D NOS [Concomitant]
     Dosage: 1500 MG, UNK

REACTIONS (5)
  - ABDOMINAL DISCOMFORT [None]
  - DECREASED APPETITE [None]
  - HYPERHIDROSIS [None]
  - RETCHING [None]
  - TREMOR [None]
